FAERS Safety Report 4825511-6 (Version None)
Quarter: 2005Q4

REPORT INFORMATION
  Report Type: 
  Country: None (occurrence: None)
  Receive Date: 20051111
  Receipt Date: 20051020
  Transmission Date: 20060501
  Serious: Yes (Other)
  Sender: FDA-Public Use
  Company Number: PHRM2005FR02830

PATIENT
  Age: 60 Year
  Sex: Male
  Weight: 95 kg

DRUGS (4)
  1. FORADIL [Suspect]
     Indication: RESPIRATORY FAILURE
     Dosage: 24 MICROG, DAILY
  2. FLIXOTIDE ^GLAXO^ [Concomitant]
  3. COMBIVENT [Concomitant]
  4. BEFIZAL [Concomitant]

REACTIONS (1)
  - VENTRICULAR EXTRASYSTOLES [None]
